FAERS Safety Report 5737849-9 (Version None)
Quarter: 2008Q2

REPORT INFORMATION
  Report Type: 
  Country: None (occurrence: None)
  Receive Date: 20080514
  Receipt Date: 20080506
  Transmission Date: 20081010
  Serious: Yes (Other)
  Sender: FDA-Public Use
  Company Number: GB-AVENTIS-200814247GDDC

PATIENT
  Age: 28 Year
  Sex: Female

DRUGS (7)
  1. RIFAMPICIN [Suspect]
     Indication: PULMONARY TUBERCULOSIS
  2. ISONIAZID [Suspect]
     Indication: PULMONARY TUBERCULOSIS
  3. PYRAZINAMIDE [Suspect]
     Indication: PULMONARY TUBERCULOSIS
  4. ETHAMBUTOL HYDROCHLORIDE [Suspect]
     Indication: PULMONARY TUBERCULOSIS
  5. EFAVIRENZ [Suspect]
     Indication: HIV INFECTION
  6. EMTRICITABINE [Suspect]
     Indication: PULMONARY TUBERCULOSIS
  7. TENOFOVIR [Suspect]
     Indication: HIV INFECTION

REACTIONS (5)
  - DRUG LEVEL INCREASED [None]
  - NAUSEA [None]
  - SLEEP DISORDER [None]
  - TRANSAMINASES INCREASED [None]
  - VOMITING [None]
